FAERS Safety Report 12979908 (Version 1)
Quarter: 2016Q4

REPORT INFORMATION
  Report Type: Spontaneous
  Country: US (occurrence: US)
  Receive Date: 20161128
  Receipt Date: 20161128
  Transmission Date: 20170207
  Serious: Yes (Hospitalization)
  Sender: FDA-Public Use
  Company Number: US-TEVA-712857USA

PATIENT
  Age: 75 Year
  Sex: Male
  Weight: 80.2 kg

DRUGS (13)
  1. RAMIPRIL. [Concomitant]
     Active Substance: RAMIPRIL
     Indication: RENAL DISORDER
  2. SIMVASTATIN. [Concomitant]
     Active Substance: SIMVASTATIN
     Indication: ARTERIOSCLEROSIS
  3. PIOGLITAZONE. [Concomitant]
     Active Substance: PIOGLITAZONE
     Indication: TYPE 2 DIABETES MELLITUS
     Dates: start: 2012
  4. LEVOTHYROXINE. [Concomitant]
     Active Substance: LEVOTHYROXINE
     Indication: HYPOTHYROIDISM
     Dates: start: 201606
  5. CITALOPRAM [Concomitant]
     Active Substance: CITALOPRAM HYDROBROMIDE
     Indication: ANXIETY
     Dates: start: 2010
  6. RAMIPRIL. [Concomitant]
     Active Substance: RAMIPRIL
     Indication: HYPERTENSION
     Dates: start: 1990
  7. CITALOPRAM [Concomitant]
     Active Substance: CITALOPRAM HYDROBROMIDE
     Indication: DEPRESSION
  8. METFORMIN [Concomitant]
     Active Substance: METFORMIN HYDROCHLORIDE
     Indication: TYPE 2 DIABETES MELLITUS
     Dates: start: 201607
  9. SIMVASTATIN. [Concomitant]
     Active Substance: SIMVASTATIN
     Indication: DYSLIPIDAEMIA
     Dates: start: 1997
  10. PF-04950615;PLACEBO (CODE NOT BROKEN) [Suspect]
     Active Substance: BOCOCIZUMAB
     Indication: CARDIOVASCULAR DISORDER
     Route: 058
     Dates: start: 20160907
  11. ASPIRIN. [Concomitant]
     Active Substance: ASPIRIN
     Indication: PROPHYLAXIS
     Dates: start: 2005
  12. GLYBURIDE. [Suspect]
     Active Substance: GLYBURIDE
     Indication: TYPE 2 DIABETES MELLITUS
     Dates: start: 1995
  13. RANITIDINE. [Concomitant]
     Active Substance: RANITIDINE
     Indication: GASTROOESOPHAGEAL REFLUX DISEASE
     Dates: start: 1993

REACTIONS (6)
  - Colitis [Recovered/Resolved]
  - Sepsis [Recovered/Resolved]
  - Acute kidney injury [Recovered/Resolved]
  - Dehydration [Recovered/Resolved]
  - Atrial fibrillation [Recovered/Resolved]
  - Electrolyte imbalance [Recovered/Resolved]

NARRATIVE: CASE EVENT DATE: 20160908
